FAERS Safety Report 21424743 (Version 2)
Quarter: 2022Q4

REPORT INFORMATION
  Report Type: Report from Study
  Country: CA (occurrence: CA)
  Receive Date: 20221007
  Receipt Date: 20221123
  Transmission Date: 20230113
  Serious: Yes (Other)
  Sender: FDA-Public Use
  Company Number: CA-BRISTOL-MYERS SQUIBB COMPANY-2022-116876

PATIENT
  Age: 66 Year
  Sex: Female
  Weight: 66.00 kg

DRUGS (5)
  1. ORENCIA [Suspect]
     Active Substance: ABATACEPT
     Indication: Rheumatoid arthritis
     Dosage: 4 WEEKS
     Route: 042
     Dates: start: 20141002
  2. ORENCIA [Suspect]
     Active Substance: ABATACEPT
     Route: 042
     Dates: start: 20141002
  3. LAMISIL [Concomitant]
     Active Substance: TERBINAFINE HYDROCHLORIDE
     Indication: Product used for unknown indication
     Dosage: DOSE: 1 %
     Route: 065
  4. Auro rosuvastatin plaq [Concomitant]
     Indication: Product used for unknown indication
     Route: 065
  5. Duloxetine plaq [Concomitant]
     Indication: Product used for unknown indication
     Dosage: DOSE: 1 %
     Route: 065

REACTIONS (2)
  - Type 2 diabetes mellitus [Unknown]
  - Weight decreased [Unknown]

NARRATIVE: CASE EVENT DATE: 20220801
